FAERS Safety Report 23636736 (Version 3)
Quarter: 2025Q2

REPORT INFORMATION
  Report Type: Spontaneous
  Country: US (occurrence: None)
  Receive Date: 20240315
  Receipt Date: 20250626
  Transmission Date: 20250716
  Serious: Yes (Hospitalization, Other)
  Sender: INCYTE
  Company Number: US-INCYTE CORPORATION-2024IN002678

PATIENT
  Age: 55 Year

DRUGS (2)
  1. JAKAFI [Suspect]
     Active Substance: RUXOLITINIB
     Indication: Myelofibrosis
     Dosage: 25 MILLIGRAM, EVERY OTHER DAY
  2. JAKAFI [Suspect]
     Active Substance: RUXOLITINIB
     Dosage: 25 MILLIGRAM, QD

REACTIONS (5)
  - Meningitis [Unknown]
  - COVID-19 [Unknown]
  - Streptococcal infection [Unknown]
  - Cryptococcosis [Unknown]
  - Immune system disorder [Unknown]
